FAERS Safety Report 22380256 (Version 2)
Quarter: 2023Q2

REPORT INFORMATION
  Report Type: Report from Study
  Country: US (occurrence: US)
  Receive Date: 20230529
  Receipt Date: 20230613
  Transmission Date: 20230721
  Serious: Yes (Other)
  Sender: FDA-Public Use
  Company Number: US-002147023-NVSC2023US119708

PATIENT
  Age: 77 Year
  Sex: Female

DRUGS (1)
  1. METHOTREXATE [Suspect]
     Active Substance: METHOTREXATE
     Indication: Psoriasis
     Dosage: UNK
     Route: 065

REACTIONS (5)
  - Pulmonary fibrosis [Unknown]
  - Dysstasia [Unknown]
  - Blood sodium decreased [Unknown]
  - Blood calcium increased [Unknown]
  - Treatment failure [Unknown]

NARRATIVE: CASE EVENT DATE: 20220924
